FAERS Safety Report 9405888 (Version 2)
Quarter: 2013Q3

REPORT INFORMATION
  Report Type: Spontaneous
  Country: AT (occurrence: AT)
  Receive Date: 20130717
  Receipt Date: 20130812
  Transmission Date: 20140515
  Serious: Yes (Disabling)
  Sender: FDA-Public Use
  Company Number: AT-B.I. PHARMACEUTICALS,INC./RIDGEFIELD-2013-AP-00567AP

PATIENT
  Age: 76 Year
  Sex: Male
  Weight: 70 kg

DRUGS (4)
  1. PRADAXA [Suspect]
     Indication: ATRIAL FIBRILLATION
     Dosage: 300 MG
     Route: 048
     Dates: start: 201209
  2. PRADAXA [Suspect]
     Indication: ISCHAEMIC STROKE
     Dosage: 220 MG
     Route: 048
     Dates: end: 20130609
  3. PRADAXA [Suspect]
     Dosage: 220 MG
     Route: 048
     Dates: start: 20130622, end: 20130703
  4. SERACTIL [Concomitant]
     Indication: MUSCULOSKELETAL PAIN

REACTIONS (4)
  - Ischaemic stroke [Recovered/Resolved]
  - Hemiplegia [Recovered/Resolved]
  - Haematoma [Recovered/Resolved]
  - Inguinal hernia [Unknown]
